FAERS Safety Report 18289427 (Version 1)
Quarter: 2020Q3

REPORT INFORMATION
  Report Type: Spontaneous
  Country: US (occurrence: US)
  Receive Date: 20200921
  Receipt Date: 20200921
  Transmission Date: 20201103
  Serious: Yes (Other)
  Sender: FDA-Public Use
  Company Number: None

PATIENT
  Age: 57 Year
  Sex: Female
  Weight: 85.05 kg

DRUGS (6)
  1. ESTER C [Concomitant]
  2. MAXALT [Concomitant]
     Active Substance: RIZATRIPTAN BENZOATE
  3. EMGALITY [Suspect]
     Active Substance: GALCANEZUMAB-GNLM
     Indication: MIGRAINE PROPHYLAXIS
     Dosage: ?          QUANTITY:1 INJECTION(S);OTHER FREQUENCY:MONTHLY;?
     Route: 058
     Dates: start: 20190405
  4. CBD HEMP [Concomitant]
  5. OMEPRAOLE [Concomitant]
  6. STINGING NETTLE [Concomitant]
     Active Substance: HERBALS

REACTIONS (9)
  - Panic attack [None]
  - Muscle spasms [None]
  - Peripheral swelling [None]
  - Pruritus [None]
  - Dysphonia [None]
  - Grip strength decreased [None]
  - Therapeutic product effect incomplete [None]
  - Palpitations [None]
  - Anxiety [None]

NARRATIVE: CASE EVENT DATE: 20200909
